FAERS Safety Report 12321560 (Version 1)
Quarter: 2016Q2

REPORT INFORMATION
  Report Type: Spontaneous
  Country: None (occurrence: None)
  Receive Date: 20160429
  Receipt Date: 20160429
  Transmission Date: 20160815
  Serious: No
  Sender: FDA-Public Use
  Company Number: None

PATIENT

DRUGS (1)
  1. ASPIRIN 81 MG, 81 MG [Suspect]
     Active Substance: ASPIRIN

REACTIONS (1)
  - Hospitalisation [None]
